FAERS Safety Report 8111964-7 (Version None)
Quarter: 2012Q1

REPORT INFORMATION
  Report Type: 
  Country: None (occurrence: None)
  Receive Date: 20120203
  Receipt Date: 20111013
  Transmission Date: 20120608
  Serious: No
  Sender: FDA-Public Use
  Company Number: US-GLAXOSMITHKLINE-A0948975A

PATIENT
  Age: 41 Year
  Sex: Male

DRUGS (3)
  1. ARIXTRA [Suspect]
     Indication: DEEP VEIN THROMBOSIS
     Dosage: 7.5MG PER DAY
     Route: 058
     Dates: start: 20101101
  2. PERCOCET [Concomitant]
  3. PRILOSEC [Concomitant]

REACTIONS (3)
  - NAUSEA [None]
  - HEADACHE [None]
  - VOMITING [None]
